FAERS Safety Report 9985586 (Version 1)
Quarter: 2014Q1

REPORT INFORMATION
  Report Type: Spontaneous
  Country: IN (occurrence: IN)
  Receive Date: 20140307
  Receipt Date: 20140307
  Transmission Date: 20141002
  Serious: Yes (Other)
  Sender: FDA-Public Use
  Company Number: IN-BAYER-2014-032697

PATIENT
  Age: 64 Year
  Sex: Male

DRUGS (8)
  1. ACETYLSALICYLIC ACID({=100 MG) [Suspect]
     Indication: CARDIOVASCULAR DISORDER
     Dosage: 75 MG/D, UNK
  2. CLOPIDOGREL [Suspect]
     Indication: CARDIOVASCULAR DISORDER
     Dosage: 75 MG/D, UNK
     Route: 048
  3. CLOPIDOGREL [Suspect]
     Indication: CARDIOVASCULAR DISORDER
     Dosage: 75 MG/D, UNK
     Route: 048
  4. ATENOLOL [Suspect]
     Indication: CARDIOVASCULAR DISORDER
     Dosage: 50 MG/D, UNK
  5. DILTIAZEM [Concomitant]
     Dosage: 75 MG/D, UNK
  6. DILTIAZEM [Concomitant]
  7. ATORVASTATIN [Concomitant]
     Dosage: 10 MG/D, UNK
  8. ATORVASTATIN [Concomitant]

REACTIONS (2)
  - Pustular psoriasis [Recovered/Resolved]
  - Psoriasis [Recovered/Resolved]
